FAERS Safety Report 6937598-5 (Version None)
Quarter: 2010Q3

REPORT INFORMATION
  Report Type: 
  Country: None (occurrence: None)
  Receive Date: 20100823
  Receipt Date: 20100823
  Transmission Date: 20110219
  Serious: Yes (Hospitalization)
  Sender: FDA-Public Use
  Company Number: None

PATIENT
  Sex: Male
  Weight: 65.2 kg

DRUGS (12)
  1. GLEEVEC [Suspect]
     Indication: PROSTATE CANCER
     Dosage: 300 MG QD PO
     Route: 048
     Dates: start: 20100706, end: 20100716
  2. SORAFENIB BAYER [Suspect]
     Indication: PROSTATE CANCER
     Dosage: 400 MG BID PO
     Route: 048
     Dates: start: 20100706, end: 20100716
  3. ADVAIR DISKUS 100/50 [Concomitant]
  4. CILOSTAZOL [Concomitant]
  5. CIPRO [Concomitant]
  6. GABAPENTIN [Concomitant]
  7. MEGACE [Concomitant]
  8. METRONIDAZOLE [Concomitant]
  9. OXYCODONE [Concomitant]
  10. PRILOSEC [Concomitant]
  11. SOTALOL HCL [Concomitant]
  12. SPIRIVAN [Concomitant]

REACTIONS (8)
  - ANTIBIOTIC RESISTANT STAPHYLOCOCCUS TEST POSITIVE [None]
  - BLOOD CULTURE POSITIVE [None]
  - DEHYDRATION [None]
  - DIARRHOEA [None]
  - DYSPHAGIA [None]
  - HEPATIC FAILURE [None]
  - MALIGNANT NEOPLASM PROGRESSION [None]
  - RENAL FAILURE ACUTE [None]
